FAERS Safety Report 16066730 (Version 1)
Quarter: 2019Q1

REPORT INFORMATION
  Report Type: Spontaneous
  Country: US (occurrence: US)
  Receive Date: 20190313
  Receipt Date: 20190313
  Transmission Date: 20190418
  Serious: No
  Sender: FDA-Public Use
  Company Number: US-GLAXOSMITHKLINE-US2019040201

PATIENT
  Sex: Female

DRUGS (1)
  1. VENTOLIN HFA [Suspect]
     Active Substance: ALBUTEROL SULFATE
     Indication: BRONCHITIS
     Dosage: 1-2 PUFFS EVERY 4-6 HOURS AS NEEDED
     Route: 055

REACTIONS (3)
  - Dizziness [Recovered/Resolved]
  - Secretion discharge [Recovered/Resolved]
  - Dysphonia [Recovered/Resolved]
